FAERS Safety Report 14124131 (Version 1)
Quarter: 2017Q4

REPORT INFORMATION
  Report Type: Spontaneous
  Country: SI (occurrence: SI)
  Receive Date: 20171025
  Receipt Date: 20171025
  Transmission Date: 20180321
  Serious: Yes (Other)
  Sender: FDA-Public Use
  Company Number: SI-PFIZER INC-2017455388

PATIENT
  Age: 60 Year
  Sex: Male

DRUGS (2)
  1. CARDURA XL [Suspect]
     Active Substance: DOXAZOSIN MESYLATE
     Indication: HYPERTENSION
     Dosage: 16 MG, DAILY
  2. CARDURA XL [Suspect]
     Active Substance: DOXAZOSIN MESYLATE
     Indication: HYPERTENSIVE CRISIS

REACTIONS (3)
  - Prescribed overdose [Unknown]
  - Blood pressure inadequately controlled [Unknown]
  - Hypertensive crisis [Unknown]
